FAERS Safety Report 5306442-4 (Version None)
Quarter: 2007Q2

REPORT INFORMATION
  Report Type: 
  Country: None (occurrence: None)
  Receive Date: 20070424
  Receipt Date: 20070417
  Transmission Date: 20071010
  Serious: Yes (Other)
  Sender: FDA-Public Use
  Company Number: ES-MERCK-0704ESP00020

PATIENT
  Age: 2 Year
  Sex: Male

DRUGS (3)
  1. SINGULAIR [Suspect]
     Indication: ASTHMA
     Route: 048
     Dates: start: 20060101, end: 20060601
  2. SINGULAIR [Suspect]
     Route: 048
     Dates: start: 20061001, end: 20070401
  3. ALBUTEROL [Concomitant]
     Indication: ASTHMA

REACTIONS (1)
  - SLEEP TERROR [None]
